FAERS Safety Report 9263105 (Version 1)
Quarter: 2013Q2

REPORT INFORMATION
  Report Type: Spontaneous
  Country: JP (occurrence: JP)
  Receive Date: 20130430
  Receipt Date: 20130430
  Transmission Date: 20140414
  Serious: Yes (Other)
  Sender: FDA-Public Use
  Company Number: JP-009507513-1304JPN016459

PATIENT
  Sex: 0

DRUGS (1)
  1. GASTER [Suspect]
     Indication: ABDOMINAL DISCOMFORT
     Dosage: 10 MG, QD, UID AFTER DINNER
     Route: 048

REACTIONS (2)
  - Femur fracture [Unknown]
  - Intentional drug misuse [Unknown]
